FAERS Safety Report 16317762 (Version 1)
Quarter: 2019Q2

REPORT INFORMATION
  Report Type: Spontaneous
  Country: US (occurrence: US)
  Receive Date: 20190516
  Receipt Date: 20190516
  Transmission Date: 20190711
  Serious: Yes (Other)
  Sender: FDA-Public Use
  Company Number: US-UMEDICA-000003

PATIENT
  Sex: Male

DRUGS (2)
  1. LOSARTAN. [Suspect]
     Active Substance: LOSARTAN
     Indication: HYPERTENSION
  2. CHLORTHALIDONE. [Suspect]
     Active Substance: CHLORTHALIDONE
     Indication: PRODUCT USED FOR UNKNOWN INDICATION

REACTIONS (5)
  - Fatigue [Unknown]
  - Dizziness [Unknown]
  - Urinary hesitation [Unknown]
  - Urinary retention [Unknown]
  - Asthenia [Unknown]
